FAERS Safety Report 6902359-X (Version None)
Quarter: 2010Q3

REPORT INFORMATION
  Report Type: 
  Country: None (occurrence: None)
  Receive Date: 20100803
  Receipt Date: 20080518
  Transmission Date: 20110219
  Serious: No
  Sender: FDA-Public Use
  Company Number: US-PFIZER INC-2008042605

PATIENT
  Sex: Female
  Weight: 65.8 kg

DRUGS (4)
  1. LYRICA [Suspect]
     Indication: FIBROMYALGIA
     Dates: start: 20071215
  2. LYRICA [Suspect]
     Indication: NERVE COMPRESSION
  3. LEXAPRO [Concomitant]
  4. ZOCOR [Concomitant]

REACTIONS (9)
  - ANGER [None]
  - EMOTIONAL DISORDER [None]
  - EYE DISORDER [None]
  - FRUSTRATION [None]
  - MIGRAINE [None]
  - UNEVALUABLE EVENT [None]
  - VISION BLURRED [None]
  - VISUAL ACUITY REDUCED [None]
  - WEIGHT INCREASED [None]
